FAERS Safety Report 6883471-0 (Version None)
Quarter: 2010Q3

REPORT INFORMATION
  Report Type: 
  Country: None (occurrence: None)
  Receive Date: 20100729
  Receipt Date: 20100727
  Transmission Date: 20110219
  Serious: Yes (Other)
  Sender: FDA-Public Use
  Company Number: JP-MERCK-1007USA03464

PATIENT

DRUGS (1)
  1. PRIMAXIN [Suspect]
     Route: 042

REACTIONS (1)
  - CARDIO-RESPIRATORY ARREST [None]
